FAERS Safety Report 15499442 (Version 1)
Quarter: 2020Q3

REPORT INFORMATION
  Report Type: Spontaneous
  Country: GB (occurrence: GB)
  Receive Date: 20181015
  Receipt Date: 20181015
  Transmission Date: 20201105
  Serious: Yes (Other)
  Sender: FDA-Public Use
  Company Number: GB-ACS-001249

PATIENT
  Sex: Male

DRUGS (8)
  1. MEROPENEM. [Suspect]
     Active Substance: MEROPENEM
     Indication: MYCOBACTERIUM ABSCESSUS INFECTION
     Route: 042
  2. AZITHROMYCIN ANHYDROUS. [Suspect]
     Active Substance: AZITHROMYCIN ANHYDROUS
     Indication: MYCOBACTERIUM ABSCESSUS INFECTION
     Dosage: FOLLOWED BY 250 MG ONCE DAILY
     Route: 048
  3. IMIPENEM AND CILASTATIN [Suspect]
     Active Substance: CILASTATIN SODIUM\IMIPENEM
     Indication: MYCOBACTERIUM ABSCESSUS INFECTION
     Route: 042
  4. MINOCYCLINE [Suspect]
     Active Substance: MINOCYCLINE HYDROCHLORIDE
     Indication: MYCOBACTERIUM ABSCESSUS INFECTION
     Route: 065
  5. TIGECYCLINE. [Suspect]
     Active Substance: TIGECYCLINE
     Indication: MYCOBACTERIUM ABSCESSUS INFECTION
     Route: 042
  6. CLOFAZAMINE [Suspect]
     Active Substance: CLOFAZIMINE
     Indication: MYCOBACTERIUM ABSCESSUS INFECTION
     Route: 065
  7. MOXIFLOXACIN. [Suspect]
     Active Substance: MOXIFLOXACIN
     Indication: MYCOBACTERIUM ABSCESSUS INFECTION
     Route: 065
  8. AMIKACIN. [Suspect]
     Active Substance: AMIKACIN
     Indication: MYCOBACTERIUM ABSCESSUS INFECTION
     Dosage: FOLLOWED BY 500 MG TWICE DAILY NEBULISED
     Route: 042

REACTIONS (3)
  - Facial paralysis [Recovered/Resolved]
  - Nausea [Not Recovered/Not Resolved]
  - Deafness unilateral [Not Recovered/Not Resolved]
